FAERS Safety Report 4746819-9 (Version None)
Quarter: 2005Q3

REPORT INFORMATION
  Report Type: 
  Country: None (occurrence: None)
  Receive Date: 20050817
  Receipt Date: 20050124
  Transmission Date: 20060218
  Serious: Yes (Hospitalization, Disabling)
  Sender: FDA-Public Use
  Company Number: AU-MERCK-0502AUS00156

PATIENT
  Age: 63 Year
  Sex: Male

DRUGS (6)
  1. VIOXX [Suspect]
     Route: 048
     Dates: start: 20000101, end: 20030905
  2. METHOTREXATE [Concomitant]
     Route: 065
  3. PREDNISONE [Concomitant]
     Route: 065
  4. SULFASALAZINE [Concomitant]
     Route: 065
  5. [THERAPY UNSPECIFIED] [Concomitant]
     Indication: HYPERTENSION
     Route: 065
  6. [THERAPY UNSPECIFIED] [Concomitant]
     Indication: GOUT
     Route: 065

REACTIONS (1)
  - CEREBROVASCULAR ACCIDENT [None]
